FAERS Safety Report 5530127-2 (Version None)
Quarter: 2007Q4

REPORT INFORMATION
  Report Type: 
  Country: None (occurrence: None)
  Receive Date: 20071130
  Receipt Date: 20071121
  Transmission Date: 20080405
  Serious: Yes (Other)
  Sender: FDA-Public Use
  Company Number: PHEH2007US15188

PATIENT
  Age: 55 Year
  Sex: Male

DRUGS (5)
  1. ZOMETA [Suspect]
  2. THALIDOMID [Suspect]
     Indication: MULTIPLE MYELOMA
     Dosage: 200 MG, QD
     Route: 048
     Dates: start: 20040220, end: 20070322
  3. THALIDOMID [Suspect]
     Dosage: 300 MG, QD
     Route: 048
     Dates: start: 20030113, end: 20030214
  4. THALIDOMID [Suspect]
     Dosage: 400 MG, QD
     Route: 048
     Dates: start: 20030314, end: 20040102
  5. THALIDOMID [Suspect]
     Dosage: 200 MG, QD
     Route: 048
     Dates: start: 20071024

REACTIONS (3)
  - ORAL SURGERY [None]
  - OSTEONECROSIS [None]
  - PAIN IN JAW [None]
